FAERS Safety Report 20538190 (Version 1)
Quarter: 2022Q1

REPORT INFORMATION
  Report Type: Spontaneous
  Country: CA (occurrence: CA)
  Receive Date: 20220302
  Receipt Date: 20220302
  Transmission Date: 20220424
  Serious: Yes (Other)
  Sender: FDA-Public Use
  Company Number: CA-JNJFOC-20210843062

PATIENT
  Age: 18 Year
  Sex: Female
  Weight: 50 kg

DRUGS (2)
  1. INFLIXIMAB [Suspect]
     Active Substance: INFLIXIMAB
     Indication: Colitis ulcerative
     Route: 042
  2. PREDNISONE [Concomitant]
     Active Substance: PREDNISONE
     Route: 065

REACTIONS (8)
  - Heart rate increased [Unknown]
  - Pyrexia [Unknown]
  - Abdominal pain lower [Unknown]
  - Dizziness [Unknown]
  - Fatigue [Unknown]
  - Pain [Unknown]
  - Condition aggravated [Unknown]
  - Off label use [Unknown]
